FAERS Safety Report 10465860 (Version 2)
Quarter: 2016Q4

REPORT INFORMATION
  Report Type: Spontaneous
  Country: BR (occurrence: BR)
  Receive Date: 20140921
  Receipt Date: 20161126
  Transmission Date: 20170206
  Serious: Yes (Hospitalization, Other)
  Sender: FDA-Public Use
  Company Number: BR-BRISTOL-MYERS SQUIBB COMPANY-21399530

PATIENT
  Sex: Female
  Weight: 90 kg

DRUGS (3)
  1. CARVEDILOL. [Concomitant]
     Active Substance: CARVEDILOL
     Indication: PRODUCT USED FOR UNKNOWN INDICATION
     Route: 065
  2. LASIX [Concomitant]
     Active Substance: FUROSEMIDE
     Indication: PRODUCT USED FOR UNKNOWN INDICATION
     Route: 065
  3. COUMADIN [Suspect]
     Active Substance: WARFARIN SODIUM
     Indication: PRODUCT USED FOR UNKNOWN INDICATION
     Dosage: 5 MG, QD
     Route: 065

REACTIONS (10)
  - Functional gastrointestinal disorder [Unknown]
  - Haemorrhage [Unknown]
  - Hypometabolism [Unknown]
  - Hypersensitivity [Unknown]
  - Malaise [Unknown]
  - Pneumonia [Unknown]
  - Fluid retention [Unknown]
  - Eating disorder [Unknown]
  - Pain [Unknown]
  - Pruritus [Unknown]
